FAERS Safety Report 6659096-9 (Version None)
Quarter: 2010Q1

REPORT INFORMATION
  Report Type: 
  Country: None (occurrence: None)
  Receive Date: 20100330
  Receipt Date: 20100319
  Transmission Date: 20100710
  Serious: Yes (Hospitalization, Other)
  Sender: FDA-Public Use
  Company Number: NO-PFIZER INC-2010012005

PATIENT
  Age: 45 Year
  Sex: Female

DRUGS (3)
  1. LYRICA [Suspect]
     Indication: PAIN
     Dosage: 75 MG, 2X/DAY
  2. LYRICA [Suspect]
     Dosage: 25 MG, 2X/DAY
  3. PETHIDINE [Concomitant]
     Dosage: 400 MG DAILY
     Route: 054

REACTIONS (8)
  - CONVULSION [None]
  - HEMIPARESIS [None]
  - INSOMNIA [None]
  - LOSS OF CONSCIOUSNESS [None]
  - MEMORY IMPAIRMENT [None]
  - PERSONALITY CHANGE [None]
  - RENAL FAILURE [None]
  - STRESS [None]
